FAERS Safety Report 9229245 (Version 1)
Quarter: 2013Q2

REPORT INFORMATION
  Report Type: Spontaneous
  Country: US (occurrence: US)
  Receive Date: 20130412
  Receipt Date: 20130412
  Transmission Date: 20140414
  Serious: No
  Sender: FDA-Public Use
  Company Number: US-ASTELLAS-2012US011135

PATIENT
  Sex: Male

DRUGS (4)
  1. PROGRAF [Suspect]
     Indication: TUBERCULOUS PLEURISY
     Dosage: 5 MG, BID
     Route: 048
     Dates: start: 19991118
  2. PROGRAF [Suspect]
     Indication: HEPATITIS B
  3. PROGRAF [Suspect]
     Indication: TUBERCULOUS PLEURISY
  4. PROGRAF [Suspect]
     Indication: HEPATITIS B

REACTIONS (1)
  - Off label use [Unknown]
